FAERS Safety Report 21205615 (Version 1)
Quarter: 2022Q3

REPORT INFORMATION
  Report Type: Spontaneous
  Country: US (occurrence: US)
  Receive Date: 20220812
  Receipt Date: 20220812
  Transmission Date: 20221027
  Serious: No
  Sender: FDA-Public Use
  Company Number: US-STRIDES ARCOLAB LIMITED-2021SP029297

PATIENT
  Sex: Female
  Weight: 68.038 kg

DRUGS (4)
  1. OMEGA-3-ACID ETHYL ESTERS [Suspect]
     Active Substance: OMEGA-3-ACID ETHYL ESTERS
     Indication: Blood cholesterol increased
     Dosage: 4 CAPSULES A DAY (2 IN THE MORNING AND 2 IN NIGHT)) STRENGTH 1 GRAM
     Route: 048
     Dates: start: 20210928
  2. OMEGA-3-ACID ETHYL ESTERS [Suspect]
     Active Substance: OMEGA-3-ACID ETHYL ESTERS
     Dosage: 1 CAPSULE EACH AT BOTH THE TIMES
     Route: 048
     Dates: start: 2021
  3. CLOPIDOGREL [Concomitant]
     Active Substance: CLOPIDOGREL BISULFATE
     Indication: Anticoagulant therapy
     Dosage: 1 TABLET PER DAY
     Route: 048
     Dates: start: 20210914
  4. AMLODIPINE [Concomitant]
     Active Substance: AMLODIPINE BESYLATE
     Indication: Hypertension
     Dosage: 1 TABLET PER DAY
     Route: 048

REACTIONS (1)
  - Diarrhoea [Recovered/Resolved]

NARRATIVE: CASE EVENT DATE: 20210101
